FAERS Safety Report 23851871 (Version 1)
Quarter: 2024Q2

REPORT INFORMATION
  Report Type: Spontaneous
  Country: CA (occurrence: None)
  Receive Date: 20240514
  Receipt Date: 20240514
  Transmission Date: 20240716
  Serious: Yes (Other)
  Sender: FDA-Public Use
  Company Number: 2024A107161

PATIENT

DRUGS (9)
  1. ROSUVASTATIN CALCIUM [Suspect]
     Active Substance: ROSUVASTATIN CALCIUM
     Indication: Product used for unknown indication
  2. METOPROLOL TARTRATE [Suspect]
     Active Substance: METOPROLOL TARTRATE
     Indication: Product used for unknown indication
  3. SODIUM BICARBONATE [Suspect]
     Active Substance: SODIUM BICARBONATE
     Indication: Product used for unknown indication
  4. SOLIRIS [Suspect]
     Active Substance: ECULIZUMAB
     Indication: C3 glomerulopathy
     Route: 042
  5. SOLIRIS [Suspect]
     Active Substance: ECULIZUMAB
     Indication: C3 glomerulopathy
     Route: 042
  6. MENINGOCOCCAL POLYSACCHARIDE VACCINE A NOS [Suspect]
     Active Substance: MENINGOCOCCAL POLYSACCHARIDE VACCINE A\NEISSERIA MENINGITIDIS GROUP A CAPSULAR POLYSACCHARIDE ANTIGE
     Indication: Immunisation
  7. MENINGOCOCCAL POLYSACCHARIDE VACCINE A NOS [Suspect]
     Active Substance: MENINGOCOCCAL POLYSACCHARIDE VACCINE A\NEISSERIA MENINGITIDIS GROUP A CAPSULAR POLYSACCHARIDE ANTIGE
     Indication: Immunisation
  8. FERROUS FUMARATE [Suspect]
     Active Substance: FERROUS FUMARATE
     Indication: Product used for unknown indication
  9. AMLODIPINE BESYLATE [Suspect]
     Active Substance: AMLODIPINE BESYLATE
     Indication: Product used for unknown indication

REACTIONS (15)
  - Blood albumin decreased [Not Recovered/Not Resolved]
  - Blood alkaline phosphatase decreased [Not Recovered/Not Resolved]
  - Blood calcium decreased [Not Recovered/Not Resolved]
  - Blood creatinine increased [Not Recovered/Not Resolved]
  - Blood immunoglobulin G decreased [Not Recovered/Not Resolved]
  - Blood phosphorus increased [Not Recovered/Not Resolved]
  - Blood pressure increased [Not Recovered/Not Resolved]
  - Blood triglycerides increased [Not Recovered/Not Resolved]
  - Haemoglobin decreased [Not Recovered/Not Resolved]
  - Iron binding capacity total decreased [Not Recovered/Not Resolved]
  - Laboratory test abnormal [Not Recovered/Not Resolved]
  - Off label use [Not Recovered/Not Resolved]
  - Pain in extremity [Not Recovered/Not Resolved]
  - Rhabdomyolysis [Not Recovered/Not Resolved]
  - Stress [Not Recovered/Not Resolved]
